FAERS Safety Report 7896907-3 (Version None)
Quarter: 2011Q4

REPORT INFORMATION
  Report Type: 
  Country: None (occurrence: None)
  Receive Date: 20111107
  Receipt Date: 20110713
  Transmission Date: 20120403
  Serious: No
  Sender: FDA-Public Use
  Company Number: US-BAYER-2011-083318

PATIENT
  Age: 18 Year
  Sex: Male
  Weight: 68.027 kg

DRUGS (1)
  1. ASPIRIN [Suspect]
     Dosage: 5 DF, ONCE, BOTTLE COUNT 100S
     Route: 048
     Dates: start: 20110713

REACTIONS (1)
  - NO ADVERSE EVENT [None]
